FAERS Safety Report 16088149 (Version 1)
Quarter: 2019Q1

REPORT INFORMATION
  Report Type: Spontaneous
  Country: US (occurrence: US)
  Receive Date: 20190319
  Receipt Date: 20190319
  Transmission Date: 20190418
  Serious: No
  Sender: FDA-Public Use
  Company Number: US-CELGENEUS-USA-20190303540

PATIENT
  Sex: Female

DRUGS (6)
  1. GEMCITABINE [Concomitant]
     Active Substance: GEMCITABINE\GEMCITABINE HYDROCHLORIDE
     Indication: PANCREATIC CARCINOMA RECURRENT
     Route: 065
     Dates: start: 201809
  2. 5 FU [Concomitant]
     Active Substance: FLUOROURACIL
     Indication: PANCREATIC CARCINOMA RECURRENT
     Route: 065
     Dates: start: 2017
  3. FOLFIRINOX [Suspect]
     Active Substance: FLUOROURACIL\IRINOTECAN\LEUCOVORIN\OXALIPLATIN
     Indication: PANCREATIC CARCINOMA RECURRENT
     Route: 065
     Dates: start: 20170522, end: 20171102
  4. CAPECITABINE. [Suspect]
     Active Substance: CAPECITABINE
     Indication: PANCREATIC CARCINOMA RECURRENT
     Route: 065
     Dates: start: 2017
  5. ABRAXANE [Suspect]
     Active Substance: PACLITAXEL
     Indication: PANCREATIC CARCINOMA RECURRENT
     Route: 041
     Dates: start: 201809
  6. LIPOSOMAL IRINOTECAN [Concomitant]
     Active Substance: IRINOTECAN HYDROCHLORIDE
     Indication: PANCREATIC CARCINOMA RECURRENT
     Route: 065
     Dates: start: 2018

REACTIONS (9)
  - Pain [Unknown]
  - Diarrhoea [Recovering/Resolving]
  - Vomiting [Recovering/Resolving]
  - Decreased appetite [Unknown]
  - Abdominal pain [Unknown]
  - Paraesthesia [Unknown]
  - Asthenia [Recovering/Resolving]
  - Pancreatic carcinoma [Unknown]
  - Nausea [Recovering/Resolving]
